FAERS Safety Report 23598722 (Version 1)
Quarter: 2024Q1

REPORT INFORMATION
  Report Type: Spontaneous
  Country: US (occurrence: US)
  Receive Date: 20240306
  Receipt Date: 20240306
  Transmission Date: 20240409
  Serious: Yes (Hospitalization)
  Sender: FDA-Public Use
  Company Number: US-STRIDES ARCOLAB LIMITED-2024SP000669

PATIENT
  Age: 42 Year
  Sex: Male

DRUGS (4)
  1. PREDNISOLONE [Suspect]
     Active Substance: PREDNISOLONE
     Indication: Secretory adenoma of pituitary
     Dosage: 40 MILLIGRAM, DAILY
     Route: 065
  2. CABERGOLINE [Suspect]
     Active Substance: CABERGOLINE
     Indication: Secretory adenoma of pituitary
     Dosage: 0.5 MILLIGRAM, ONCE A WEEK
     Route: 065
  3. CABERGOLINE [Suspect]
     Active Substance: CABERGOLINE
     Dosage: 0.5 MILLIGRAM, RECEIVED ESCALATED CABERGOLINE TO 0.5MG 5 DAYS WEEKLY
     Route: 065
  4. METHIMAZOLE [Suspect]
     Active Substance: METHIMAZOLE
     Indication: Secretory adenoma of pituitary
     Dosage: 30 MILLIGRAM, BID
     Route: 065

REACTIONS (2)
  - Meningitis [Unknown]
  - Drug ineffective [Unknown]
